FAERS Safety Report 14943546 (Version 1)
Quarter: 2018Q2

REPORT INFORMATION
  Report Type: Spontaneous
  Country: AU (occurrence: AU)
  Receive Date: 20180528
  Receipt Date: 20180528
  Transmission Date: 20180711
  Serious: Yes (Hospitalization, Other)
  Sender: FDA-Public Use
  Company Number: PHHY2018AU004558

PATIENT
  Age: 66 Year
  Sex: Male

DRUGS (1)
  1. VOLTAREN [Suspect]
     Active Substance: DICLOFENAC SODIUM
     Indication: ARTHRALGIA
     Dosage: 2 DF, QD (2 DOSAGE FORM(S) SINGLE DOSE (2 DOSAGE FORM(S) DAILY)
     Route: 065
     Dates: start: 20180417, end: 20180417

REACTIONS (17)
  - Lip discolouration [Recovered/Resolved]
  - Tremor [Recovered/Resolved]
  - Oropharyngeal discomfort [Recovered/Resolved]
  - Lip swelling [Recovered/Resolved]
  - Angioedema [Recovered/Resolved]
  - Swollen tongue [Recovered/Resolved]
  - Hypersensitivity [Recovered/Resolved]
  - Pharyngeal oedema [Recovered/Resolved]
  - Dyspnoea [Recovered/Resolved]
  - Swelling [Recovered/Resolved]
  - Anaphylactic reaction [Recovered/Resolved]
  - Face oedema [Recovered/Resolved]
  - Rash [Recovered/Resolved]
  - Paraesthesia [Recovered/Resolved]
  - Pruritus generalised [Recovered/Resolved]
  - Generalised erythema [Recovered/Resolved]
  - Enlarged uvula [Recovered/Resolved]

NARRATIVE: CASE EVENT DATE: 20180417
